FAERS Safety Report 9850386 (Version 2)
Quarter: 2014Q1

REPORT INFORMATION
  Report Type: Spontaneous
  Country: US (occurrence: US)
  Receive Date: 20140128
  Receipt Date: 20140128
  Transmission Date: 20141002
  Serious: Yes (Other)
  Sender: FDA-Public Use
  Company Number: US-AMGEN-USASP2013083865

PATIENT
  Age: 77 Year
  Sex: Female
  Weight: 48.25 kg

DRUGS (12)
  1. PROLIA [Suspect]
     Indication: OSTEOPOROSIS POSTMENOPAUSAL
     Dosage: 60 MG/ML, UNK
     Route: 065
     Dates: start: 20131007
  2. ASPIRIN [Concomitant]
     Dosage: 81 MG, QD
     Route: 048
  3. CALCIUM WITH VITAMIN D3 [Concomitant]
     Dosage: 1200 MG, BID
  4. CARVEDILOL [Concomitant]
     Dosage: 6.25 MG, BID
     Route: 048
  5. DIAZEPAM [Concomitant]
     Dosage: 5 MG, BID
     Route: 048
  6. GLUCOSAMINE [Concomitant]
     Dosage: UNK UNK, QD
     Route: 048
  7. LIPITOR [Concomitant]
     Dosage: 40 MG, QD
     Route: 048
  8. LISINOPRIL [Concomitant]
     Dosage: 5 MG, QD
     Route: 048
  9. NIACIN [Concomitant]
     Dosage: 500 MG, QD
     Route: 048
  10. OMEPRAZOLE [Concomitant]
     Dosage: 20 MG, BID
     Route: 048
  11. SPIRONOLACTONE [Concomitant]
     Dosage: 25 MG, QD
     Route: 048
  12. SYNTHROID [Concomitant]
     Dosage: 100 MUG, QD
     Route: 048

REACTIONS (16)
  - Cardiac operation [Unknown]
  - Activities of daily living impaired [Not Recovered/Not Resolved]
  - Dysuria [Not Recovered/Not Resolved]
  - Pollakiuria [Unknown]
  - Wrong drug administered [Unknown]
  - Haemorrhoids [Unknown]
  - Dyspepsia [Unknown]
  - Frustration [Unknown]
  - Abdominal distension [Unknown]
  - Feeling abnormal [Not Recovered/Not Resolved]
  - Flatulence [Not Recovered/Not Resolved]
  - Abdominal pain upper [Unknown]
  - Bone pain [Not Recovered/Not Resolved]
  - Arthralgia [Unknown]
  - Constipation [Not Recovered/Not Resolved]
  - Drug hypersensitivity [Unknown]
